FAERS Safety Report 4481392-4 (Version None)
Quarter: 2004Q3

REPORT INFORMATION
  Report Type: 
  Country: None (occurrence: None)
  Receive Date: 20040923
  Receipt Date: 20040520
  Transmission Date: 20050211
  Serious: No
  Sender: FDA-Public Use
  Company Number: USA040568131

PATIENT
  Age: 84 Year
  Sex: Female

DRUGS (2)
  1. FORTEO [Suspect]
     Dates: start: 20040301
  2. PREDNISONE [Concomitant]

REACTIONS (2)
  - ASTHENIA [None]
  - INJECTION SITE HAEMORRHAGE [None]
